FAERS Safety Report 5875506-9 (Version None)
Quarter: 2008Q3

REPORT INFORMATION
  Report Type: 
  Country: None (occurrence: None)
  Receive Date: 20080909
  Receipt Date: 20080826
  Transmission Date: 20090109
  Serious: Yes (Disabling)
  Sender: FDA-Public Use
  Company Number: US-AVENTIS-200814940US

PATIENT
  Sex: Female
  Weight: 70.3 kg

DRUGS (3)
  1. CLOMID [Suspect]
     Indication: INFERTILITY
     Dosage: DOSE: 100MG QD FOR 5 DAYS
     Dates: start: 20080101, end: 20080101
  2. CLOMID [Suspect]
     Dosage: DOSE: 150MG QD FOR 5 DAYS
     Dates: start: 20080301, end: 20080301
  3. GONADOTROPINS [Concomitant]
     Indication: INFERTILITY
     Dosage: DOSE: UNK

REACTIONS (2)
  - PHOTOPHOBIA [None]
  - VISUAL IMPAIRMENT [None]
